FAERS Safety Report 12497822 (Version 1)
Quarter: 2016Q2

REPORT INFORMATION
  Report Type: Report from Study
  Country: US (occurrence: US)
  Receive Date: 20160625
  Receipt Date: 20160625
  Transmission Date: 20160815
  Serious: Yes (Death, Other)
  Sender: FDA-Public Use
  Company Number: US-GILEAD-2016-0219667

PATIENT
  Age: 49 Year
  Sex: Female

DRUGS (1)
  1. EMTRICITABINE/TENOFOVIR DISOPROXIL FUMARATE [Suspect]
     Active Substance: EMTRICITABINE\TENOFOVIR DISOPROXIL
     Indication: HIV INFECTION
     Dosage: 1 DF, UNK
     Route: 048
     Dates: end: 20160223

REACTIONS (1)
  - Death [Fatal]

NARRATIVE: CASE EVENT DATE: 20160223
